FAERS Safety Report 8060510-5 (Version None)
Quarter: 2012Q1

REPORT INFORMATION
  Report Type: 
  Country: None (occurrence: None)
  Receive Date: 20120120
  Receipt Date: 20120109
  Transmission Date: 20120608
  Serious: Yes (Hospitalization)
  Sender: FDA-Public Use
  Company Number: TW-BRISTOL-MYERS SQUIBB COMPANY-16354375

PATIENT

DRUGS (4)
  1. FLUOROURACIL [Suspect]
     Indication: COLORECTAL CANCER METASTATIC
     Dosage: FOR ALMOST 1 YEAR
     Route: 042
  2. ERBITUX [Suspect]
     Indication: COLORECTAL CANCER METASTATIC
     Dosage: ALMOST 1 YEAR
     Route: 042
  3. LEUCOVORIN CALCIUM [Suspect]
     Indication: COLORECTAL CANCER METASTATIC
     Dosage: FOR ALMOST 1 YEAR
     Route: 042
  4. OXALIPLATIN [Suspect]
     Indication: COLORECTAL CANCER METASTATIC
     Dosage: FOR 6 CYCLES FOR ALMOST 1 YEAR
     Route: 042

REACTIONS (2)
  - PANCREATIC DISORDER [None]
  - BILE DUCT OBSTRUCTION [None]
